FAERS Safety Report 7713621-5 (Version None)
Quarter: 2011Q3

REPORT INFORMATION
  Report Type: 
  Country: None (occurrence: None)
  Receive Date: 20110826
  Receipt Date: 20110818
  Transmission Date: 20111222
  Serious: Yes (Hospitalization, Other)
  Sender: FDA-Public Use
  Company Number: PHHY2011TR74716

PATIENT
  Age: 62 Year
  Sex: Male

DRUGS (1)
  1. WARFARIN SODIUM [Suspect]
     Indication: CEREBROVASCULAR DISORDER
     Dosage: 5 MG/DAY

REACTIONS (6)
  - HAEMORRHAGIC ASCITES [None]
  - SMALL INTESTINAL OBSTRUCTION [None]
  - ABDOMINAL PAIN UPPER [None]
  - PERITONEAL HAEMORRHAGE [None]
  - ABDOMINAL DISTENSION [None]
  - INTRA-ABDOMINAL HAEMATOMA [None]
